FAERS Safety Report 13022191 (Version 4)
Quarter: 2018Q1

REPORT INFORMATION
  Report Type: Spontaneous
  Country: US (occurrence: US)
  Receive Date: 20161213
  Receipt Date: 20180306
  Transmission Date: 20180508
  Serious: Yes (Other)
  Sender: FDA-Public Use
  Company Number: US-PFIZER INC-2016565037

PATIENT
  Age: 61 Year
  Sex: Female

DRUGS (2)
  1. XELJANZ XR [Interacting]
     Active Substance: TOFACITINIB CITRATE
     Dosage: 11 MG, 1X/DAY
     Route: 048
     Dates: start: 20160902
  2. XELJANZ XR [Suspect]
     Active Substance: TOFACITINIB CITRATE
     Indication: RHEUMATOID ARTHRITIS
     Dosage: 11 MG, DAILY (1 DF DAILY)
     Route: 048
     Dates: start: 20160824

REACTIONS (8)
  - Diarrhoea [Unknown]
  - Headache [Unknown]
  - Cough [Unknown]
  - Condition aggravated [Recovering/Resolving]
  - Drug interaction [Unknown]
  - Pneumonia [Unknown]
  - Oropharyngeal pain [Unknown]
  - Cyst [Unknown]
